FAERS Safety Report 4351250-4 (Version None)
Quarter: 2004Q2

REPORT INFORMATION
  Report Type: 
  Country: None (occurrence: None)
  Receive Date: 20040428
  Receipt Date: 20040412
  Transmission Date: 20050107
  Serious: Yes (Hospitalization)
  Sender: FDA-Public Use
  Company Number: USA040259534

PATIENT
  Age: 56 Year
  Sex: Male
  Weight: 89 kg

DRUGS (1)
  1. STRATTERA [Suspect]
     Indication: ATTENTION DEFICIT/HYPERACTIVITY DISORDER
     Dosage: 40 MG
     Dates: start: 20030201

REACTIONS (6)
  - AORTIC DISORDER [None]
  - ASTHENIA [None]
  - FATIGUE [None]
  - GASTROINTESTINAL CARCINOMA [None]
  - NEOPLASM [None]
  - RECURRENT CANCER [None]
